APPROVED DRUG PRODUCT: ESTRADIOL
Active Ingredient: ESTRADIOL
Strength: 0.05MG/24HR
Dosage Form/Route: SYSTEM;TRANSDERMAL
Application: N021048 | Product #001
Applicant: ORTHO MCNEIL PHARMACEUTICAL INC
Approved: Sep 20, 1999 | RLD: No | RS: No | Type: DISCN